FAERS Safety Report 4469993-0 (Version None)
Quarter: 2004Q3

REPORT INFORMATION
  Report Type: 
  Country: None (occurrence: None)
  Receive Date: 20040917
  Receipt Date: 20040706
  Transmission Date: 20050211
  Serious: Yes (Other)
  Sender: FDA-Public Use
  Company Number: 2004045893

PATIENT
  Age: 50 Year
  Sex: Male
  Weight: 65.318 kg

DRUGS (4)
  1. VFEND [Suspect]
     Indication: BRONCHOPULMONARY ASPERGILLOSIS
     Dosage: INTRAVENOUS
     Route: 042
     Dates: start: 20030421, end: 20030101
  2. LIPITOR [Suspect]
     Indication: DIABETES MELLITUS
     Dosage: ORAL
     Route: 048
     Dates: start: 20030421, end: 20030101
  3. TEMOZOLOMIDE (TEMOZOLOMIDE) [Concomitant]
  4. VICODIN [Concomitant]

REACTIONS (4)
  - BRONCHOPULMONARY ASPERGILLOSIS [None]
  - DRUG RESISTANCE [None]
  - ERYTHEMA [None]
  - HEPATIC ENZYME INCREASED [None]
